FAERS Safety Report 17544082 (Version 2)
Quarter: 2020Q1

REPORT INFORMATION
  Report Type: Spontaneous
  Country: CN (occurrence: CN)
  Receive Date: 20200316
  Receipt Date: 20200320
  Transmission Date: 20200409
  Serious: Yes (Other)
  Sender: FDA-Public Use
  Company Number: CN-ROCHE-2564953

PATIENT
  Age: 41 Year
  Sex: Female

DRUGS (34)
  1. RITUXIMAB. [Suspect]
     Active Substance: RITUXIMAB
     Indication: B-CELL LYMPHOMA
     Dosage: ON DAY 2
     Route: 065
     Dates: start: 20181231, end: 20190105
  2. VINDESINE [Concomitant]
     Active Substance: VINDESINE
     Dosage: ON DAY 3
     Route: 065
     Dates: start: 20190123, end: 20190311
  3. ETOPOSIDE. [Concomitant]
     Active Substance: ETOPOSIDE
     Dosage: FROM DAY 1 TO DAY 4
     Route: 065
     Dates: start: 20190503
  4. DOXORUBICIN [Concomitant]
     Active Substance: DOXORUBICIN
     Indication: B-CELL LYMPHOMA
     Dosage: FROM DAY 1 TO DAY 4
     Route: 065
     Dates: start: 20190503
  5. CEFTAZIDIME. [Concomitant]
     Active Substance: CEFTAZIDIME
  6. DEXAMETHASONE. [Concomitant]
     Active Substance: DEXAMETHASONE
     Indication: B-CELL LYMPHOMA
     Dosage: FROM DAY 1 TO DAY 4
     Route: 065
     Dates: start: 20181231, end: 20190105
  7. ETOPOSIDE. [Concomitant]
     Active Substance: ETOPOSIDE
     Indication: B-CELL LYMPHOMA
     Dosage: FROM DAY 3 TO DAY 4
     Route: 065
     Dates: start: 20190403, end: 20190407
  8. CYCLOPHOSPHAMIDE. [Concomitant]
     Active Substance: CYCLOPHOSPHAMIDE
     Dosage: ON DAY 3
     Route: 065
     Dates: start: 20190123, end: 20190311
  9. CYCLOPHOSPHAMIDE. [Concomitant]
     Active Substance: CYCLOPHOSPHAMIDE
     Dosage: FROM DAY 1 TO DAY 4
     Route: 065
     Dates: start: 20190430
  10. CYCLOPHOSPHAMIDE. [Concomitant]
     Active Substance: CYCLOPHOSPHAMIDE
     Dosage: ON DAY 5
     Route: 065
     Dates: start: 20190530
  11. DEXAMETHASONE. [Concomitant]
     Active Substance: DEXAMETHASONE
     Dosage: FROM DAY 1 TO DAY 5
     Route: 065
     Dates: start: 20190123, end: 20190311
  12. VINDESINE [Concomitant]
     Active Substance: VINDESINE
     Dosage: FROM DAY 1 TO DAY 4
     Route: 065
     Dates: start: 20190530
  13. DEXAMETHASONE. [Concomitant]
     Active Substance: DEXAMETHASONE
     Dosage: FROM DAY 1 TO DAY 5
     Route: 065
     Dates: start: 20190503
  14. DEXAMETHASONE. [Concomitant]
     Active Substance: DEXAMETHASONE
     Dosage: FROM DAY 1 TO DAY 4
     Route: 065
     Dates: start: 20190629
  15. CISPLATIN. [Concomitant]
     Active Substance: CISPLATIN
     Indication: B-CELL LYMPHOMA
     Dosage: ON DAY 3
     Route: 065
     Dates: start: 20190629
  16. LENALIDOMIDE [Concomitant]
     Active Substance: LENALIDOMIDE
     Indication: B-CELL LYMPHOMA
     Route: 065
     Dates: start: 20190629
  17. LENALIDOMIDE [Concomitant]
     Active Substance: LENALIDOMIDE
     Route: 065
     Dates: start: 20190723
  18. RITUXIMAB. [Suspect]
     Active Substance: RITUXIMAB
     Dosage: ON DAY 6
     Route: 065
     Dates: start: 20190530
  19. CYCLOPHOSPHAMIDE. [Concomitant]
     Active Substance: CYCLOPHOSPHAMIDE
     Indication: B-CELL LYMPHOMA
     Dosage: ON DAY 3
     Route: 065
     Dates: start: 20181231, end: 20190105
  20. VINDESINE [Concomitant]
     Active Substance: VINDESINE
     Indication: B-CELL LYMPHOMA
     Dosage: ON DAY 3
     Route: 065
     Dates: start: 20181231, end: 20190105
  21. VINDESINE [Concomitant]
     Active Substance: VINDESINE
     Dosage: FROM DAY 1 TO DAY 4
     Route: 065
     Dates: start: 20190503
  22. ETOPOSIDE. [Concomitant]
     Active Substance: ETOPOSIDE
     Dosage: FROM DAY 1 TO DAY 4
     Route: 065
     Dates: start: 20190530
  23. CYTARABINE. [Concomitant]
     Active Substance: CYTARABINE
     Dosage: FROM DAY 2 TO DAY 3
     Route: 065
     Dates: start: 20190723
  24. DOXORUBICIN [Concomitant]
     Active Substance: DOXORUBICIN
     Dosage: FROM DAY 1 TO DAY 4
     Route: 065
     Dates: start: 20190530
  25. RITUXIMAB. [Suspect]
     Active Substance: RITUXIMAB
     Dosage: ON DAY 2
     Route: 065
     Dates: start: 20190403, end: 20190407
  26. CYCLOPHOSPHAMIDE. [Concomitant]
     Active Substance: CYCLOPHOSPHAMIDE
     Dosage: ON DAY 5
     Route: 065
     Dates: start: 20190503
  27. DEXAMETHASONE. [Concomitant]
     Active Substance: DEXAMETHASONE
     Dosage: FROM DAY 1 TO DAY 5
     Route: 065
     Dates: start: 20190530
  28. CYTARABINE. [Concomitant]
     Active Substance: CYTARABINE
     Indication: B-CELL LYMPHOMA
     Dosage: FROM DAY 4 TO DAY 5
     Route: 065
     Dates: start: 20190629
  29. METHOTREXATE. [Concomitant]
     Active Substance: METHOTREXATE
     Indication: B-CELL LYMPHOMA
     Dosage: ON DAY 1
     Route: 065
     Dates: start: 20190723
  30. RITUXIMAB. [Suspect]
     Active Substance: RITUXIMAB
     Dosage: ON DAY 2
     Route: 065
     Dates: start: 20190123, end: 20190311
  31. RITUXIMAB. [Suspect]
     Active Substance: RITUXIMAB
     Dosage: ON DAY 0
     Route: 065
     Dates: start: 20190723
  32. CYCLOPHOSPHAMIDE. [Concomitant]
     Active Substance: CYCLOPHOSPHAMIDE
     Dosage: ON DAY 3
     Route: 065
     Dates: start: 20190403, end: 20190407
  33. DEXAMETHASONE. [Concomitant]
     Active Substance: DEXAMETHASONE
     Dosage: FROM DAY 1 TO DAY 5
     Route: 065
     Dates: start: 20190403, end: 20190407
  34. DEXAMETHASONE. [Concomitant]
     Active Substance: DEXAMETHASONE
     Dosage: FROM DAY 1 TO DAY 3
     Route: 065
     Dates: start: 20190430

REACTIONS (8)
  - Thrombosis [Unknown]
  - Abdominal distension [Unknown]
  - Respiratory tract infection [Unknown]
  - Anuria [Unknown]
  - Hydroureter [Unknown]
  - Ureteric dilatation [Unknown]
  - Pneumonia [Unknown]
  - Kidney enlargement [Unknown]
